FAERS Safety Report 16248668 (Version 1)
Quarter: 2019Q2

REPORT INFORMATION
  Report Type: Spontaneous
  Country: FR (occurrence: FR)
  Receive Date: 20190429
  Receipt Date: 20190429
  Transmission Date: 20190711
  Serious: Yes (Other)
  Sender: FDA-Public Use
  Company Number: FR-TEVA-2019-FR-1042520

PATIENT
  Age: 2 Year
  Sex: Male
  Weight: 11 kg

DRUGS (5)
  1. VINCRISTINE (SULFATE DE) [Suspect]
     Active Substance: VINCRISTINE SULFATE
     Indication: NEUROBLASTOMA
     Route: 041
     Dates: start: 20121214, end: 20130402
  2. ETOPOSIDE. [Suspect]
     Active Substance: ETOPOSIDE
     Indication: NEUROBLASTOMA
     Route: 041
     Dates: start: 20130124, end: 20130309
  3. CISPLATINE [Suspect]
     Active Substance: CISPLATIN
     Indication: NEUROBLASTOMA
     Route: 041
     Dates: start: 20130124, end: 20130310
  4. CYCLOPHOSPHAMIDE. [Suspect]
     Active Substance: CYCLOPHOSPHAMIDE
     Indication: NEUROBLASTOMA
     Route: 041
     Dates: start: 20121214, end: 20130215
  5. DOXORUBICINE [Suspect]
     Active Substance: DOXORUBICIN
     Indication: NEUROBLASTOMA
     Route: 041
     Dates: start: 20121214, end: 20130402

REACTIONS (1)
  - Decreased vibratory sense [Recovered/Resolved]

NARRATIVE: CASE EVENT DATE: 20130215
